FAERS Safety Report 20962448 (Version 1)
Quarter: 2022Q2

REPORT INFORMATION
  Report Type: Spontaneous
  Country: US (occurrence: US)
  Receive Date: 20220615
  Receipt Date: 20220615
  Transmission Date: 20220721
  Serious: No
  Sender: FDA-Public Use
  Company Number: US-PFIZER INC-202200835909

PATIENT
  Age: 45 Year
  Sex: Female

DRUGS (2)
  1. PAXLOVID [Suspect]
     Active Substance: NIRMATRELVIR\RITONAVIR
     Indication: COVID-19 treatment
     Dosage: UNK
     Dates: start: 20220608, end: 20220612
  2. ATORVASTATIN [Concomitant]
     Active Substance: ATORVASTATIN
     Dosage: UNK
     Dates: end: 20220607

REACTIONS (2)
  - Diarrhoea [Recovering/Resolving]
  - Dysgeusia [Recovering/Resolving]

NARRATIVE: CASE EVENT DATE: 20220609
